FAERS Safety Report 5007846-X (Version None)
Quarter: 2006Q2

REPORT INFORMATION
  Report Type: 
  Country: None (occurrence: None)
  Receive Date: 20060522
  Receipt Date: 20060515
  Transmission Date: 20061013
  Serious: Yes (Hospitalization)
  Sender: FDA-Public Use
  Company Number: BG-JNJFOC-20060501804

PATIENT
  Sex: Male
  Weight: 65 kg

DRUGS (3)
  1. RISPERDAL CONSTA [Suspect]
     Route: 030
  2. RISPERDAL CONSTA [Suspect]
     Indication: SCHIZOPHRENIA
     Route: 030
  3. RISPOLEPT [Concomitant]
     Indication: SCHIZOPHRENIA
     Route: 048

REACTIONS (6)
  - AMNESIA [None]
  - HAEMATURIA [None]
  - LEUKOCYTURIA [None]
  - LOSS OF CONSCIOUSNESS [None]
  - SUICIDE ATTEMPT [None]
  - URETERIC STENOSIS [None]
